FAERS Safety Report 14220399 (Version 2)
Quarter: 2019Q1

REPORT INFORMATION
  Report Type: Spontaneous
  Country: SA (occurrence: SA)
  Receive Date: 20171124
  Receipt Date: 20190123
  Transmission Date: 20190417
  Serious: No
  Sender: FDA-Public Use
  Company Number: PHHY2017SA171380

PATIENT
  Sex: Male

DRUGS (1)
  1. DICLAC [Suspect]
     Active Substance: DICLOFENAC
     Indication: PROCEDURAL PAIN
     Dosage: 75 MG, BID
     Route: 048
     Dates: start: 20170910, end: 20170912

REACTIONS (3)
  - Blood glucose increased [Recovered/Resolved]
  - Pollakiuria [Recovered/Resolved]
  - Dry mouth [Recovered/Resolved]

NARRATIVE: CASE EVENT DATE: 20170912
